FAERS Safety Report 12819743 (Version 1)
Quarter: 2016Q4

REPORT INFORMATION
  Report Type: Spontaneous
  Country: US (occurrence: US)
  Receive Date: 20161006
  Receipt Date: 20161006
  Transmission Date: 20170207
  Serious: No
  Sender: FDA-Public Use
  Company Number: None

PATIENT
  Age: 50 Year
  Sex: Male
  Weight: 125.1 kg

DRUGS (1)
  1. ENOXAPARIN [Suspect]
     Active Substance: ENOXAPARIN
     Indication: ANTICOAGULANT THERAPY
     Route: 058
     Dates: start: 20160928, end: 20161004

REACTIONS (3)
  - Injection site bruising [None]
  - Needle issue [None]
  - Injection site mass [None]

NARRATIVE: CASE EVENT DATE: 20161003
